FAERS Safety Report 6882392-7 (Version None)
Quarter: 2010Q3

REPORT INFORMATION
  Report Type: 
  Country: None (occurrence: None)
  Receive Date: 20100728
  Receipt Date: 20100728
  Transmission Date: 20110219
  Serious: No
  Sender: FDA-Public Use
  Company Number: None

PATIENT
  Age: 52 Year
  Sex: Male

DRUGS (1)
  1. WARFARIN SODIUM [Suspect]
     Indication: DEEP VEIN THROMBOSIS
     Dates: start: 20100601, end: 20100616

REACTIONS (11)
  - ABSCESS [None]
  - ARTHRALGIA [None]
  - CARDIAC MURMUR [None]
  - CONJUNCTIVAL HYPERAEMIA [None]
  - FASCIITIS [None]
  - HEPATIC CIRRHOSIS [None]
  - HEPATIC CONGESTION [None]
  - JOINT EFFUSION [None]
  - MUSCLE NECROSIS [None]
  - OEDEMA PERIPHERAL [None]
  - PLEURAL EFFUSION [None]
